FAERS Safety Report 8033890-4 (Version None)
Quarter: 2012Q1

REPORT INFORMATION
  Report Type: 
  Country: None (occurrence: None)
  Receive Date: 20120110
  Receipt Date: 20120106
  Transmission Date: 20120608
  Serious: Yes (Other)
  Sender: FDA-Public Use
  Company Number: US-BAYER-2012-002547

PATIENT
  Age: 53 Year
  Sex: Female

DRUGS (2)
  1. BETASERON [Suspect]
     Indication: RELAPSING-REMITTING MULTIPLE SCLEROSIS
     Dosage: 6 MIU, (3/4 OF FULL DOSE)
     Route: 058
     Dates: start: 20100801
  2. BETASERON [Suspect]
     Dosage: 4 MIU, (HALF DOSE)
     Route: 058

REACTIONS (6)
  - HYPOAESTHESIA [None]
  - MULTIPLE SCLEROSIS RELAPSE [None]
  - GAIT DISTURBANCE [None]
  - PYREXIA [None]
  - HEADACHE [None]
  - EYE PAIN [None]
